FAERS Safety Report 4331545-0 (Version None)
Quarter: 2004Q2

REPORT INFORMATION
  Report Type: 
  Country: None (occurrence: None)
  Receive Date: 20040405
  Receipt Date: 20040128
  Transmission Date: 20050107
  Serious: Yes (Other)
  Sender: FDA-Public Use
  Company Number: PHBS2004BE01644

PATIENT
  Age: 67 Year
  Sex: Female

DRUGS (2)
  1. DESFERAL [Suspect]
     Indication: SIDEROBLASTIC ANAEMIA
     Route: 065
     Dates: start: 19920101, end: 19920101
  2. DESFERAL [Suspect]
     Dosage: 40 MG/KG/D FOR 5D EVERY 2-3 MO
     Route: 065
     Dates: start: 19950101, end: 20020101

REACTIONS (5)
  - DEAFNESS [None]
  - DRUG HYPERSENSITIVITY [None]
  - DYSPHAGIA [None]
  - HYPOACUSIS [None]
  - LOCALISED OEDEMA [None]
